FAERS Safety Report 5117528-1 (Version None)
Quarter: 2006Q3

REPORT INFORMATION
  Report Type: 
  Country: None (occurrence: None)
  Receive Date: 20060926
  Receipt Date: 20060907
  Transmission Date: 20061208
  Serious: Yes (Other)
  Sender: FDA-Public Use
  Company Number: US200609001990

PATIENT
  Age: 62 Year
  Sex: Female

DRUGS (1)
  1. HUMULIN 70/30 [Suspect]
     Indication: DIABETES MELLITUS
     Dosage: 80 + 30 U, DAILY (1/D), UNK - SEE IMAGE
     Dates: start: 20060701

REACTIONS (1)
  - RENAL FAILURE [None]
